FAERS Safety Report 4839900-7 (Version None)
Quarter: 2005Q4

REPORT INFORMATION
  Report Type: 
  Country: None (occurrence: None)
  Receive Date: 20051129
  Receipt Date: 20051012
  Transmission Date: 20060501
  Serious: Yes (Other)
  Sender: FDA-Public Use
  Company Number: US-ROCHE-421170

PATIENT
  Age: 47 Year
  Sex: Female
  Weight: 81.6 kg

DRUGS (2)
  1. PEGASYS [Suspect]
     Route: 058
     Dates: start: 20030415, end: 20040415
  2. COPEGUS [Suspect]
     Route: 048
     Dates: start: 20030415, end: 20040415

REACTIONS (6)
  - ANAEMIA [None]
  - FATIGUE [None]
  - FIBROMYALGIA [None]
  - HEADACHE [None]
  - MYALGIA [None]
  - RAYNAUD'S PHENOMENON [None]
